FAERS Safety Report 7088820-9 (Version None)
Quarter: 2010Q4

REPORT INFORMATION
  Report Type: 
  Country: None (occurrence: None)
  Receive Date: 20101108
  Receipt Date: 20101027
  Transmission Date: 20110411
  Serious: Yes (Death)
  Sender: FDA-Public Use
  Company Number: PHHO2010DE16731

PATIENT
  Sex: Male
  Weight: 55 kg

DRUGS (9)
  1. METOPROLOL [Suspect]
     Indication: HYPERTENSION
     Dosage: 95 MG
     Route: 048
     Dates: start: 20080101
  2. ARICEPT [Suspect]
     Indication: DEMENTIA ALZHEIMER'S TYPE
     Dosage: 5 MG DAILY
     Route: 048
     Dates: start: 20100105
  3. ARICEPT [Suspect]
     Dosage: 10 MG DAILY
     Route: 048
  4. MIRTAZAPINE [Concomitant]
  5. ASPIRIN [Concomitant]
     Indication: CEREBROVASCULAR ACCIDENT
  6. FUROSEMIDE [Concomitant]
     Indication: HYPERTENSION
  7. OMEPRAZOLE [Concomitant]
     Indication: ABDOMINAL PAIN UPPER
  8. METAMIZOLE SODIUM [Concomitant]
     Indication: PAIN
  9. VENLAFAXINE HCL [Concomitant]
     Indication: DEPRESSION

REACTIONS (1)
  - SUDDEN CARDIAC DEATH [None]
